FAERS Safety Report 18931524 (Version 2)
Quarter: 2021Q2

REPORT INFORMATION
  Report Type: Spontaneous
  Country: ES (occurrence: ES)
  Receive Date: 20210224
  Receipt Date: 20210406
  Transmission Date: 20210717
  Serious: Yes (Death)
  Sender: FDA-Public Use
  Company Number: ES-ABBVIE-21K-144-3786702-00

PATIENT

DRUGS (2)
  1. DUODOPA [Suspect]
     Active Substance: CARBIDOPA\LEVODOPA
  2. DUODOPA [Suspect]
     Active Substance: CARBIDOPA\LEVODOPA
     Indication: PRODUCT USED FOR UNKNOWN INDICATION
     Dosage: STRENGTH (CMP): 20 MG/ML 5 MG/ML.
     Route: 050
     Dates: start: 20170323

REACTIONS (1)
  - Death [Fatal]

NARRATIVE: CASE EVENT DATE: 20200812
